FAERS Safety Report 9469335 (Version 1)
Quarter: 2013Q3

REPORT INFORMATION
  Report Type: Spontaneous
  Country: US (occurrence: None)
  Receive Date: 20130815
  Receipt Date: 20130815
  Transmission Date: 20140515
  Serious: Yes (Other)
  Sender: FDA-Public Use
  Company Number: CIO-13044519

PATIENT
  Age: 39 Year
  Sex: Female

DRUGS (1)
  1. COVERGIRL ADVANCED RADIANCE AGE DEFYING MAKEUP PLUS SUNSCREEN SPF 10 (ALL SHADES) [Suspect]
     Dosage: 1 APPLIC, 1/DAY, TOPICAL
     Route: 061
     Dates: start: 20130726, end: 20130727

REACTIONS (22)
  - Asphyxia [None]
  - Upper airway obstruction [None]
  - Obstructive airways disorder [None]
  - Dyspnoea [None]
  - Hypoxia [None]
  - Pharyngeal oedema [None]
  - Hypersensitivity [None]
  - Blister [None]
  - Oral mucosal blistering [None]
  - Gingival blister [None]
  - Lip blister [None]
  - Eye swelling [None]
  - Skin swelling [None]
  - Lip swelling [None]
  - Oedema mouth [None]
  - Swelling face [None]
  - Secretion discharge [None]
  - Rash erythematous [None]
  - Rash [None]
  - Gingival pain [None]
  - Eye pain [None]
  - Eye disorder [None]
